FAERS Safety Report 22974956 (Version 11)
Quarter: 2024Q3

REPORT INFORMATION
  Report Type: Report from Study
  Country: US (occurrence: US)
  Receive Date: 20230923
  Receipt Date: 20240918
  Transmission Date: 20241017
  Serious: Yes (Hospitalization, Other)
  Sender: TAKEDA
  Company Number: US-TAKEDA-2020TUS013896

PATIENT
  Sex: Male
  Weight: 82 kg

DRUGS (25)
  1. PONATINIB [Suspect]
     Active Substance: PONATINIB
     Indication: Chronic myeloid leukaemia recurrent
     Dosage: 15 MILLIGRAM
     Route: 048
     Dates: start: 201604
  2. PONATINIB [Suspect]
     Active Substance: PONATINIB
     Dosage: 15 MILLIGRAM, QOD
     Route: 048
  3. PONATINIB [Suspect]
     Active Substance: PONATINIB
     Dosage: 15 MILLIGRAM, QD
     Route: 065
     Dates: start: 20181004
  4. PONATINIB [Suspect]
     Active Substance: PONATINIB
     Dosage: 15 MILLIGRAM, QOD
     Route: 065
     Dates: start: 20230418
  5. PONATINIB [Suspect]
     Active Substance: PONATINIB
     Dosage: 15 MILLIGRAM, QD
     Route: 065
  6. PONATINIB [Suspect]
     Active Substance: PONATINIB
     Dosage: 15 MILLIGRAM, QOD
     Route: 048
  7. PONATINIB [Suspect]
     Active Substance: PONATINIB
     Dosage: 15 MILLIGRAM, QOD
     Route: 048
  8. PONATINIB [Suspect]
     Active Substance: PONATINIB
     Dosage: 15 MILLIGRAM, QOD
     Route: 048
  9. PONATINIB [Suspect]
     Active Substance: PONATINIB
     Dosage: 15 MILLIGRAM, QOD
     Route: 048
  10. MIRALAX [Concomitant]
     Active Substance: POLYETHYLENE GLYCOL 3350
     Dosage: UNK
     Route: 065
  11. SENNA [Concomitant]
     Active Substance: SENNA LEAF\SENNOSIDES\SENNOSIDES A AND B
     Dosage: UNK
     Route: 065
  12. LEVOTHYROXINE SODIUM [Concomitant]
     Active Substance: LEVOTHYROXINE SODIUM
     Dosage: 0.75 MILLIGRAM, QD
     Route: 065
  13. LISINOPRIL [Concomitant]
     Active Substance: LISINOPRIL
     Indication: Chronic myeloid leukaemia
     Dosage: 5 MILLIGRAM, QOD
     Route: 065
  14. CRESTOR [Concomitant]
     Active Substance: ROSUVASTATIN CALCIUM
     Dosage: 10 MILLIGRAM, QD
     Route: 065
  15. PROPRANOLOL HYDROCHLORIDE [Concomitant]
     Active Substance: PROPRANOLOL HYDROCHLORIDE
     Dosage: 40 MILLIGRAM, BID
     Route: 065
  16. FLOMAX [Concomitant]
     Active Substance: TAMSULOSIN HYDROCHLORIDE
     Dosage: UNK
     Route: 065
  17. VALIUM [Concomitant]
     Active Substance: DIAZEPAM
     Indication: Anxiety
     Dosage: UNK
     Route: 065
  18. TRAZODONE HCL [Concomitant]
     Active Substance: TRAZODONE HYDROCHLORIDE
     Dosage: UNK
     Route: 065
  19. TYLENOL [Concomitant]
     Active Substance: ACETAMINOPHEN
     Dosage: UNK
     Route: 065
  20. MOTRIN [Concomitant]
     Active Substance: IBUPROFEN
     Dosage: UNK
     Route: 065
  21. BENTYL [Concomitant]
     Active Substance: DICYCLOMINE HYDROCHLORIDE
     Dosage: UNK
     Route: 065
  22. TAMSULOSIN [Concomitant]
     Active Substance: TAMSULOSIN
     Indication: Benign prostatic hyperplasia
     Dosage: 0.4 MILLIGRAM, BID
     Route: 065
  23. SODIUM CHLORIDE [Concomitant]
     Active Substance: SODIUM CHLORIDE
     Dosage: UNK
     Route: 065
  24. STOOL SOFTENER (DOCUSATE) [Concomitant]
     Active Substance: DOCUSATE
     Dosage: UNK
     Route: 065
  25. DEMECLOCYCLINE HYDROCHLORIDE [Concomitant]
     Active Substance: DEMECLOCYCLINE HYDROCHLORIDE
     Dosage: UNK
     Route: 065

REACTIONS (14)
  - Hyponatraemia [Unknown]
  - Pancreatitis [Recovering/Resolving]
  - Meningioma [Not Recovered/Not Resolved]
  - Blood pressure increased [Unknown]
  - Off label use [Unknown]
  - Malaise [Unknown]
  - Pain [Unknown]
  - Hepatic enzyme increased [Unknown]
  - Illness [Unknown]
  - Cardiac disorder [Unknown]
  - Hypophagia [Unknown]
  - Psychiatric symptom [Unknown]
  - Product dose omission issue [Unknown]
  - Anxiety [Unknown]

NARRATIVE: CASE EVENT DATE: 20180101
